FAERS Safety Report 7336538-7 (Version None)
Quarter: 2011Q1

REPORT INFORMATION
  Report Type: 
  Country: None (occurrence: None)
  Receive Date: 20110307
  Receipt Date: 20110228
  Transmission Date: 20110831
  Serious: Yes (Hospitalization)
  Sender: FDA-Public Use
  Company Number: US-US-EMD SERONO, INC.-236179J08USA

PATIENT
  Sex: Female
  Weight: 68 kg

DRUGS (4)
  1. REBIF [Suspect]
     Indication: MULTIPLE SCLEROSIS
     Route: 058
     Dates: start: 20050830, end: 20080605
  2. REBIF [Suspect]
     Route: 058
     Dates: start: 20080825
  3. NEURONTIN [Concomitant]
  4. DITROPAN XL [Concomitant]

REACTIONS (6)
  - MULTIPLE SCLEROSIS RELAPSE [None]
  - ABSCESS [None]
  - OPEN WOUND [None]
  - LOSS OF CONSCIOUSNESS [None]
  - HYPOAESTHESIA [None]
  - PAIN IN EXTREMITY [None]
